FAERS Safety Report 7450534-0 (Version None)
Quarter: 2011Q2

REPORT INFORMATION
  Report Type: 
  Country: None (occurrence: None)
  Receive Date: 20110502
  Receipt Date: 20110427
  Transmission Date: 20111010
  Serious: Yes (Death, Hospitalization)
  Sender: FDA-Public Use
  Company Number: PHHY2011DE19941

PATIENT
  Sex: Male

DRUGS (5)
  1. RASILEZ [Suspect]
     Indication: HYPERTENSION
     Dosage: 1 DF, BID
     Route: 048
     Dates: start: 20101005, end: 20101027
  2. ASPIRIN [Concomitant]
     Indication: CORONARY ARTERY DISEASE
     Dosage: 1 DF, QD
     Route: 048
  3. SIMVASTATIN [Concomitant]
     Indication: HYPERLIPIDAEMIA
     Dosage: 40 MG, QD
     Route: 048
  4. AMLODIPINE [Concomitant]
     Indication: HYPERTENSION
     Dosage: 10 MG, QD
     Route: 048
  5. TORSEMIDE [Concomitant]
     Indication: RENAL FAILURE
     Dosage: 50 MG, QD
     Route: 048

REACTIONS (6)
  - LARYNGEAL OEDEMA [None]
  - DYSARTHRIA [None]
  - DYSPHAGIA [None]
  - GENERAL PHYSICAL HEALTH DETERIORATION [None]
  - ANAPHYLACTIC REACTION [None]
  - RENAL FAILURE CHRONIC [None]
